FAERS Safety Report 6524578-7 (Version None)
Quarter: 2010Q1

REPORT INFORMATION
  Report Type: 
  Country: None (occurrence: None)
  Receive Date: 20100104
  Receipt Date: 20091221
  Transmission Date: 20100710
  Serious: No
  Sender: FDA-Public Use
  Company Number: PHEH2009US17016

PATIENT
  Sex: Male
  Weight: 58 kg

DRUGS (4)
  1. EXJADE [Suspect]
     Indication: IRON METABOLISM DISORDER
     Dosage: 20 MG/KG PER DAY
     Route: 048
  2. EXJADE [Suspect]
     Indication: HAEMOCHROMATOSIS
     Dosage: 30 MG/KG PER DAY
     Route: 048
  3. EXJADE [Suspect]
     Dosage: 20 MG/KG PER DAY
     Route: 048
  4. EXJADE [Suspect]
     Dosage: 1250 MG, QHS
     Route: 048
     Dates: start: 20091101

REACTIONS (3)
  - ABDOMINAL DISCOMFORT [None]
  - DIARRHOEA [None]
  - VOMITING [None]
